FAERS Safety Report 20725438 (Version 1)
Quarter: 2022Q2

REPORT INFORMATION
  Report Type: Spontaneous
  Country: CN (occurrence: CN)
  Receive Date: 20220419
  Receipt Date: 20220419
  Transmission Date: 20220720
  Serious: Yes (Hospitalization)
  Sender: FDA-Public Use
  Company Number: CN-BAXTER-2022BAX008466

PATIENT
  Age: 5 Year
  Sex: Male

DRUGS (5)
  1. CYCLOPHOSPHAMIDE [Suspect]
     Active Substance: CYCLOPHOSPHAMIDE
     Indication: Acute lymphocytic leukaemia
     Dosage: 4:1 GLUCOSE AND SODIUM CHLORIDE SOLUTION 250ML DILUTED WITH CYCLOPHOSPHAMIDE 0.77G QD IV GTT.
     Route: 041
     Dates: start: 20220312, end: 20220312
  2. DEXTROSE\SODIUM CHLORIDE [Suspect]
     Active Substance: DEXTROSE\SODIUM CHLORIDE
     Indication: Medication dilution
     Dosage: 4:1 GLUCOSE AND SODIUM CHLORIDE SOLUTION 250ML DILUTED WITH CYCLOPHOSPHAMIDE 0.77G ST IV GTT
     Route: 041
     Dates: start: 20220312, end: 20220312
  3. DEXTROSE [Suspect]
     Active Substance: DEXTROSE
     Indication: Medication dilution
     Dosage: 4:1 GLUCOSE 250ML DILUTED WITH CYTARABINE 0.77G BID.
     Route: 041
     Dates: start: 20220312, end: 20220315
  4. MERCAPTOPURINE [Suspect]
     Active Substance: MERCAPTOPURINE
     Indication: Acute lymphocytic leukaemia
     Dosage: MERCAPTOPURINE 38 MG QN
     Route: 048
     Dates: start: 20220312, end: 20220315
  5. CYTARABINE [Suspect]
     Active Substance: CYTARABINE
     Indication: Acute lymphocytic leukaemia
     Dosage: 4:1 GLUCOSE 250ML DILUTED WITH CYTARABINE 0.77G BID
     Route: 041
     Dates: start: 20220312, end: 20220315

REACTIONS (1)
  - Myelosuppression [Recovering/Resolving]

NARRATIVE: CASE EVENT DATE: 20220322
